FAERS Safety Report 24275106 (Version 2)
Quarter: 2024Q3

REPORT INFORMATION
  Report Type: Report from Study
  Country: US (occurrence: US)
  Receive Date: 20240902
  Receipt Date: 20240924
  Transmission Date: 20241016
  Serious: Yes (Other)
  Sender: ABBVIE
  Company Number: US-ABBVIE-5901951

PATIENT
  Sex: Female

DRUGS (1)
  1. CREON [Suspect]
     Active Substance: PANCRELIPASE AMYLASE\PANCRELIPASE LIPASE\PANCRELIPASE PROTEASE
     Indication: Pancreatic carcinoma
     Route: 048
     Dates: start: 2021

REACTIONS (4)
  - Oesophageal prosthesis insertion [Recovered/Resolved]
  - Product use complaint [Not Recovered/Not Resolved]
  - Vascular stent stenosis [Unknown]
  - Pain [Unknown]

NARRATIVE: CASE EVENT DATE: 20240101
